FAERS Safety Report 9587892 (Version 2)
Quarter: 2013Q4

REPORT INFORMATION
  Report Type: Spontaneous
  Country: US (occurrence: US)
  Receive Date: 20131003
  Receipt Date: 20131104
  Transmission Date: 20140711
  Serious: Yes (Death)
  Sender: FDA-Public Use
  Company Number: US-GLAXOSMITHKLINE-A1043707A

PATIENT
  Sex: Female

DRUGS (5)
  1. VOTRIENT [Suspect]
     Indication: RENAL CANCER
     Dates: start: 20130907
  2. DEXAMETHASONE [Concomitant]
  3. METOPROLOL [Concomitant]
  4. MORPHINE [Concomitant]
  5. OXYCODONE [Concomitant]

REACTIONS (1)
  - Death [Fatal]
